FAERS Safety Report 7963116-9 (Version None)
Quarter: 2011Q4

REPORT INFORMATION
  Report Type: 
  Country: None (occurrence: None)
  Receive Date: 20111207
  Receipt Date: 20111201
  Transmission Date: 20120403
  Serious: Yes (Hospitalization)
  Sender: FDA-Public Use
  Company Number: US-ROCHE-1018340

PATIENT
  Age: 71 Year
  Sex: Female
  Weight: 40.678 kg

DRUGS (10)
  1. DIOVAN [Concomitant]
  2. NORVASC [Concomitant]
  3. CALCIUM [Concomitant]
  4. DEXAMETHASONE [Concomitant]
     Dosage: PRN
  5. AVASTIN [Suspect]
     Indication: HEPATIC NEOPLASM MALIGNANT
     Route: 042
     Dates: start: 20110921, end: 20111102
  6. TARCEVA [Suspect]
     Indication: HEPATIC NEOPLASM MALIGNANT
     Dosage: EVERY DAY
     Route: 048
     Dates: start: 20110921, end: 20111123
  7. IBUPROFEN (ADVIL) [Concomitant]
     Dosage: PRN
  8. PROBIOTIC (ENZYMES, INC) [Concomitant]
  9. ADVAIR DISKUS 100/50 [Concomitant]
     Dosage: 750-50 UG
  10. BARACLUDE [Concomitant]

REACTIONS (1)
  - PANCREATITIS [None]
